FAERS Safety Report 10256201 (Version 3)
Quarter: 2016Q3

REPORT INFORMATION
  Report Type: Spontaneous
  Country: JP (occurrence: JP)
  Receive Date: 20140624
  Receipt Date: 20160801
  Transmission Date: 20161109
  Serious: Yes (Other)
  Sender: FDA-Public Use
  Company Number: JP-BRISTOL-MYERS SQUIBB COMPANY-21046834

PATIENT
  Age: 39 Year
  Sex: Female

DRUGS (5)
  1. CLOMID [Concomitant]
     Active Substance: CLOMIPHENE CITRATE
     Indication: OVULATION DISORDER
     Dosage: 10 MG, QD
     Route: 065
     Dates: start: 2011, end: 2011
  2. DUPHASTON [Concomitant]
     Active Substance: DYDROGESTERONE
     Indication: LUTEAL PHASE DEFICIENCY
     Dosage: 20 MG, QD
     Route: 048
     Dates: start: 20111129
  3. GONAL-F [Concomitant]
     Active Substance: FOLLITROPIN
     Indication: OVULATION DISORDER
     Dosage: UNK
     Route: 065
     Dates: start: 20120724, end: 20120802
  4. METFORMIN HYDROCHLORIDE. [Suspect]
     Active Substance: METFORMIN HYDROCHLORIDE
     Indication: INSULIN RESISTANCE
     Dosage: 500 MG, UNK
     Route: 048
     Dates: start: 20111124, end: 20120916
  5. HUMAN CHORIONIC GONADOTROPHIN [Concomitant]
     Indication: OVULATION DISORDER
     Dosage: 8 IU, UNK
     Route: 065
     Dates: start: 20120208, end: 20120803

REACTIONS (3)
  - Maternal exposure during pregnancy [Recovered/Resolved]
  - Off label use [Unknown]
  - Abortion spontaneous [Unknown]

NARRATIVE: CASE EVENT DATE: 20121026
